FAERS Safety Report 9401485 (Version 3)
Quarter: 2013Q3

REPORT INFORMATION
  Report Type: Spontaneous
  Country: CZ (occurrence: CZ)
  Receive Date: 20130716
  Receipt Date: 20130730
  Transmission Date: 20140515
  Serious: Yes (Hospitalization)
  Sender: FDA-Public Use
  Company Number: CZ-ROCHE-1248888

PATIENT
  Age: 81 Year
  Sex: Female

DRUGS (4)
  1. MIRCERA [Suspect]
     Indication: NEPHROGENIC ANAEMIA
     Dosage: DATE OF LAST DOSE RECEIVED ON 17/MAY/2013.
     Route: 065
     Dates: start: 20100921, end: 201206
  2. MIRCERA [Suspect]
     Route: 065
     Dates: start: 201209, end: 201306
  3. NEORECORMON [Suspect]
     Indication: NEPHROGENIC ANAEMIA
     Route: 065
     Dates: start: 20130606, end: 20130606
  4. ARANESP [Suspect]
     Indication: NEPHROGENIC ANAEMIA
     Dosage: 80 ADMINISTERED
     Route: 065
     Dates: start: 201206, end: 20120830

REACTIONS (1)
  - Haemoglobin decreased [Not Recovered/Not Resolved]
